FAERS Safety Report 25064681 (Version 1)
Quarter: 2025Q1

REPORT INFORMATION
  Report Type: Report from Study
  Country: US (occurrence: US)
  Receive Date: 20250311
  Receipt Date: 20250311
  Transmission Date: 20250409
  Serious: Yes (Hospitalization, Other)
  Sender: ABBVIE
  Company Number: US-ABBVIE-6150024

PATIENT
  Age: 65 Year
  Sex: Male

DRUGS (2)
  1. HUMIRA [Suspect]
     Active Substance: ADALIMUMAB
     Indication: Psoriasis
     Dosage: CITRATE FREE, FORM STRENGTH: 40 MILLIGRAM
     Route: 058
     Dates: start: 2005, end: 2024
  2. HUMIRA [Suspect]
     Active Substance: ADALIMUMAB
     Indication: Arthritis

REACTIONS (14)
  - Intervertebral disc protrusion [Recovering/Resolving]
  - Staphylococcal infection [Recovering/Resolving]
  - Fall [Recovered/Resolved]
  - Unevaluable event [Not Recovered/Not Resolved]
  - Pain [Unknown]
  - Malaise [Unknown]
  - Sepsis [Recovering/Resolving]
  - Psoriasis [Not Recovered/Not Resolved]
  - Pharyngeal disorder [Unknown]
  - Product use complaint [Unknown]
  - General symptom [Not Recovered/Not Resolved]
  - Balance disorder [Recovered/Resolved]
  - Arthritis [Unknown]
  - Skin lesion [Unknown]

NARRATIVE: CASE EVENT DATE: 20230901
